FAERS Safety Report 5355532-9 (Version None)
Quarter: 2007Q2

REPORT INFORMATION
  Report Type: 
  Country: None (occurrence: None)
  Receive Date: 20070530
  Receipt Date: 20061206
  Transmission Date: 20071010
  Serious: Yes (Other)
  Sender: FDA-Public Use
  Company Number: US200609001071

PATIENT
  Age: 42 Year
  Sex: Female
  Weight: 86.2 kg

DRUGS (5)
  1. ZYPREXA [Suspect]
     Indication: DEPRESSION
     Dates: start: 19960101, end: 20020101
  2. PAROXETINE [Concomitant]
  3. PREDNISOLONE [Concomitant]
  4. ESTROGENS CONJUGATED W/PROGESTERONE (ESTROGENS CONJUGATED, PROGESTERON [Concomitant]
  5. METOLAZONE [Concomitant]

REACTIONS (7)
  - DIABETES MELLITUS [None]
  - DIABETIC KETOACIDOSIS [None]
  - GLYCOSURIA [None]
  - HYPERPHAGIA [None]
  - PANCREATITIS [None]
  - POLYURIA [None]
  - WEIGHT DECREASED [None]
